FAERS Safety Report 5008119-1 (Version None)
Quarter: 2006Q2

REPORT INFORMATION
  Report Type: 
  Country: None (occurrence: None)
  Receive Date: 20060404
  Receipt Date: 20060130
  Transmission Date: 20061013
  Serious: Yes (Hospitalization)
  Sender: FDA-Public Use
  Company Number: 2006-0009177

PATIENT
  Sex: Female

DRUGS (1)
  1. TRUVADA [Suspect]

REACTIONS (1)
  - PANCREATITIS RELAPSING [None]
